FAERS Safety Report 22367111 (Version 1)
Quarter: 2023Q2

REPORT INFORMATION
  Report Type: Report from Study
  Country: GB (occurrence: GB)
  Receive Date: 20230525
  Receipt Date: 20230525
  Transmission Date: 20230721
  Serious: Yes (Hospitalization, Other)
  Sender: FDA-Public Use
  Company Number: GB-ROCHE-3348307

PATIENT
  Age: 67 Year
  Sex: Female

DRUGS (18)
  1. TRASTUZUMAB [Suspect]
     Active Substance: TRASTUZUMAB
     Indication: Breast cancer
     Dosage: 600 MILLIGRAM, Q3W(SINGLE 3 WEEKS)
     Route: 042
     Dates: start: 20161110, end: 20161110
  2. TRASTUZUMAB [Suspect]
     Active Substance: TRASTUZUMAB
     Dosage: 450 MILLIGRAM, Q3W (07-DEC-2016)
     Route: 042
     Dates: start: 20161207
  3. DOCETAXEL [Suspect]
     Active Substance: DOCETAXEL
     Indication: Breast cancer
     Dosage: 130 MILLIGRAM, Q3W(SINGLE 3 WEEKS)
     Route: 042
     Dates: start: 20161110
  4. DOCETAXEL [Suspect]
     Active Substance: DOCETAXEL
     Dosage: 66 MILLIGRAM, Q3W (04-JAN-201)
     Route: 042
  5. PERTUZUMAB [Suspect]
     Active Substance: PERTUZUMAB
     Indication: Breast cancer
     Dosage: 840 MILLIGRAM, Q3W (SINGLE 3 WEEKS)
     Route: 042
     Dates: start: 20161109, end: 20161109
  6. PERTUZUMAB [Suspect]
     Active Substance: PERTUZUMAB
     Dosage: 420 MILLIGRAM, Q3W (07-DEC-2016)
     Route: 042
  7. PERTUZUMAB [Suspect]
     Active Substance: PERTUZUMAB
     Dosage: 420 MILLIGRAM, Q3W (26-JUN-2017)
     Route: 042
  8. AMOXICILLIN [Concomitant]
     Active Substance: AMOXICILLIN
     Dosage: 526 MILLIGRAM, TID (21-NOV-2016)
     Route: 048
     Dates: end: 20161124
  9. CLAVULANATE POTASSIUM [Concomitant]
     Active Substance: CLAVULANATE POTASSIUM
     Dosage: 526 MILLIGRAM, TID (21-NOV-2016)
     Route: 048
     Dates: end: 20161124
  10. CLOTRIMAZOLE [Concomitant]
     Active Substance: CLOTRIMAZOLE
     Indication: Vulvovaginal candidiasis
     Dosage: UNK
     Route: 065
  11. CETIRIZINE [Concomitant]
     Active Substance: CETIRIZINE HYDROCHLORIDE
     Indication: Rhinorrhoea
     Dosage: UNK
     Route: 065
  12. CETIRIZINE [Concomitant]
     Active Substance: CETIRIZINE HYDROCHLORIDE
     Indication: Lacrimation increased
  13. BENZYDAMINE [Concomitant]
     Active Substance: BENZYDAMINE
     Indication: Mouth ulceration
     Dosage: UNK
     Route: 048
  14. FILGRASTIM [Concomitant]
     Active Substance: FILGRASTIM
     Dosage: UNK
     Route: 042
  15. LANSOPRAZOLE [Concomitant]
     Active Substance: LANSOPRAZOLE
     Indication: Dyspepsia
     Dosage: 30 MILLIGRAM, QD
     Route: 048
  16. LANSOPRAZOLE [Concomitant]
     Active Substance: LANSOPRAZOLE
     Dosage: UNK
     Route: 065
  17. LOPERAMIDE [Concomitant]
     Active Substance: LOPERAMIDE
     Indication: Diarrhoea
     Dosage: 2 MILLIGRAM, QID (24-NOV-2016)
     Route: 048
     Dates: start: 20161124
  18. PIPERACILLIN SODIUM\TAZOBACTAM SODIUM [Concomitant]
     Active Substance: PIPERACILLIN SODIUM\TAZOBACTAM SODIUM
     Dosage: UNK (18-NOV-2016)
     Route: 042
     Dates: end: 20161121

REACTIONS (1)
  - Neutropenic sepsis [Recovered/Resolved]

NARRATIVE: CASE EVENT DATE: 20161116
